FAERS Safety Report 7809078-6 (Version None)
Quarter: 2011Q4

REPORT INFORMATION
  Report Type: 
  Country: None (occurrence: None)
  Receive Date: 20111012
  Receipt Date: 20110929
  Transmission Date: 20120403
  Serious: Yes (Other)
  Sender: FDA-Public Use
  Company Number: US-JNJFOC-2003036350

PATIENT
  Sex: Female
  Weight: 79.83 kg

DRUGS (3)
  1. ZYRTEC [Suspect]
     Route: 048
  2. ZYRTEC [Suspect]
     Indication: RHINITIS ALLERGIC
     Dosage: FREQUENCY TEXT: UNKNOWN DAILY DOSE TEXT: UNKNOWN
     Route: 048
     Dates: start: 20020101
  3. PRENATAL VITAMINS [Concomitant]
     Route: 065

REACTIONS (2)
  - URTICARIA [None]
  - ABORTION SPONTANEOUS [None]
